FAERS Safety Report 7835415-2 (Version None)
Quarter: 2011Q4

REPORT INFORMATION
  Report Type: 
  Country: None (occurrence: None)
  Receive Date: 20111024
  Receipt Date: 20111014
  Transmission Date: 20120403
  Serious: Yes (Hospitalization, Other)
  Sender: FDA-Public Use
  Company Number: CA-ABBOTT-11P-028-0847649-00

PATIENT
  Age: 56 Year
  Sex: Female

DRUGS (34)
  1. PREDNISONE [Suspect]
     Route: 048
     Dates: start: 20110712, end: 20110718
  2. PREDNISONE [Suspect]
     Route: 048
     Dates: start: 20110802, end: 20110808
  3. ACULAR [Concomitant]
     Indication: UVEITIS
     Dosage: 4 GTT
     Route: 047
     Dates: start: 20070701, end: 20110301
  4. RAMIPRIL [Concomitant]
     Indication: CARDIOVASCULAR EVENT PROPHYLAXIS
     Dates: start: 20080125
  5. OMEPRAZOLE [Concomitant]
     Indication: PROPHYLAXIS
     Dates: start: 20080516
  6. NEORAL [Concomitant]
     Indication: UVEITIS
     Route: 048
     Dates: start: 20080529, end: 20110317
  7. MYCOPHENOLATE MOFETIL (CELLCEPT) [Concomitant]
     Route: 048
     Dates: start: 20070926, end: 20080301
  8. PREDNISONE [Suspect]
     Route: 048
     Dates: start: 20110628, end: 20110704
  9. OMEPRAZOLE [Concomitant]
     Indication: ABDOMINAL DISCOMFORT
  10. PREDNISONE [Suspect]
     Route: 048
     Dates: start: 20110726, end: 20110801
  11. INH [Concomitant]
     Indication: PROPHYLAXIS
     Dates: start: 20110428
  12. DIABETA [Concomitant]
     Indication: TYPE 2 DIABETES MELLITUS
  13. PYRIDOXINE HCL [Concomitant]
     Indication: ANTIBIOTIC PROPHYLAXIS
     Dates: start: 20110531
  14. IMURAN [Concomitant]
     Indication: UVEITIS
     Route: 048
     Dates: start: 20070905, end: 20070909
  15. MYCOPHENOLATE MOFETIL (CELLCEPT) [Concomitant]
     Indication: UVEITIS
     Route: 048
     Dates: start: 20100924, end: 20110317
  16. PREDNISONE [Concomitant]
     Route: 048
     Dates: start: 20081113, end: 20090129
  17. PREDNISONE [Suspect]
     Route: 048
     Dates: start: 20110705, end: 20110711
  18. PREDNISONE [Suspect]
     Route: 048
     Dates: start: 20110719, end: 20110725
  19. CRESTOR [Concomitant]
     Indication: DYSLIPIDAEMIA
     Dates: start: 20080125
  20. SEPTRA DS [Concomitant]
     Indication: URINARY TRACT INFECTION
     Dates: start: 20110603, end: 20110613
  21. PREDNISONE [Concomitant]
     Route: 048
     Dates: start: 20080516, end: 20080701
  22. HUMIRA [Suspect]
     Indication: UVEITIS
     Route: 058
     Dates: start: 20110503, end: 20110804
  23. PREDNISONE [Suspect]
     Route: 048
     Dates: start: 20110512, end: 20110529
  24. PREDNISONE [Suspect]
     Route: 048
     Dates: start: 20110530, end: 20110613
  25. ASAPHENC [Concomitant]
     Indication: CARDIOVASCULAR EVENT PROPHYLAXIS
     Dates: start: 20080125
  26. DIABETA [Concomitant]
     Indication: HYPERGLYCAEMIA
     Dates: start: 20110513
  27. PREDNISONE [Suspect]
     Indication: UVEITIS
     Route: 048
     Dates: start: 20110504, end: 20110511
  28. PREDNISONE [Suspect]
     Route: 048
     Dates: start: 20110614, end: 20110620
  29. PREDNISONE [Suspect]
     Route: 048
     Dates: start: 20110621, end: 20110627
  30. PREDNISONE [Suspect]
     Route: 048
     Dates: start: 20110809, end: 20110814
  31. METFORMIN HCL [Concomitant]
     Indication: TYPE 2 DIABETES MELLITUS
     Dates: start: 20090313
  32. METFORMIN HCL [Concomitant]
     Indication: HYPERGLYCAEMIA
  33. CENTRUM [Concomitant]
     Indication: VITAMIN SUPPLEMENTATION
     Dates: start: 20110531
  34. KENALOG [Concomitant]
     Indication: UVEITIS
     Route: 047
     Dates: start: 20090305, end: 20090422

REACTIONS (1)
  - PERICARDITIS [None]
